FAERS Safety Report 9321677 (Version 1)
Quarter: 2013Q2

REPORT INFORMATION
  Report Type: Spontaneous
  Country: DK (occurrence: DE)
  Receive Date: 20130531
  Receipt Date: 20130531
  Transmission Date: 20140414
  Serious: Yes (Other)
  Sender: FDA-Public Use
  Company Number: DE-FRI-1000045517

PATIENT
  Sex: Male

DRUGS (2)
  1. CITALOPRAM [Suspect]
     Dosage: 40 MG
     Route: 048
     Dates: start: 201303
  2. MIRTAZAPIN [Suspect]
     Dosage: 45 MG
     Dates: start: 201303

REACTIONS (3)
  - Diverticulitis [Recovering/Resolving]
  - Abdominal pain upper [Recovering/Resolving]
  - Lipase increased [Recovering/Resolving]
